FAERS Safety Report 4449496-X (Version None)
Quarter: 2004Q3

REPORT INFORMATION
  Report Type: 
  Country: None (occurrence: None)
  Receive Date: 20040913
  Receipt Date: 20040826
  Transmission Date: 20050211
  Serious: Yes (Life-Threatening)
  Sender: FDA-Public Use
  Company Number: 2004-DE-04588GD

PATIENT
  Age: 80 Year
  Sex: Male

DRUGS (10)
  1. ACETYLSALICYLIC ACID SRT [Suspect]
     Dosage: 25 MG (NR, 1 TIME), PO
     Route: 048
     Dates: end: 20040418
  2. DIPYRIDAMOLE [Suspect]
     Dosage: 400 MG (NR, 2 TIMES), PO
     Route: 048
     Dates: end: 20040418
  3. CLOPIDOGREL BISULFATE [Suspect]
     Dosage: 75 MG (NR, 1 TIME), PO
     Route: 048
     Dates: start: 20040416, end: 20040418
  4. HEPARIN SODIUM [Suspect]
     Dosage: 10000U (NR, 2 TIMES), SC
     Route: 058
     Dates: start: 20040416, end: 20040418
  5. BICALUTAMIDE (BICALUTAMIDE) (NR) [Concomitant]
  6. ATENOLOL (ATENOLOL) (NR) [Concomitant]
  7. CALCITRIOL (CALCITRIOL) (NR) [Concomitant]
  8. PANTOPRAZOLE (PANTOPRAZOLE) [Concomitant]
  9. ATORVASTATIN (ATORVASTATIN) (NR) [Concomitant]
  10. ISOSORBIDE MONONITRATE (ISOSORBIDE MONONITRATE) (NR) [Concomitant]

REACTIONS (2)
  - INCISION SITE HAEMORRHAGE [None]
  - RECTAL HAEMORRHAGE [None]
